FAERS Safety Report 21792384 (Version 2)
Quarter: 2023Q1

REPORT INFORMATION
  Report Type: Report from Study
  Country: GB (occurrence: GB)
  Receive Date: 20221229
  Receipt Date: 20230118
  Transmission Date: 20230418
  Serious: Yes (Hospitalization, Other)
  Sender: FDA-Public Use
  Company Number: GB-ABBVIE-4252267

PATIENT
  Age: 70 Year
  Sex: Male

DRUGS (3)
  1. CARBIDOPA\LEVODOPA [Suspect]
     Active Substance: CARBIDOPA\LEVODOPA
     Indication: Parkinson^s disease
     Dosage: MD: 14.0MLS CR: 4.2MLS ED:1.6MLS, 20MGS/5MGS
     Route: 050
  2. CARBIDOPA\LEVODOPA [Suspect]
     Active Substance: CARBIDOPA\LEVODOPA
  3. QUETIAPINE [Concomitant]
     Active Substance: QUETIAPINE
     Indication: Product used for unknown indication

REACTIONS (9)
  - Loss of consciousness [Unknown]
  - Fall [Unknown]
  - Muscle rigidity [Unknown]
  - Joint injury [Unknown]
  - Mobility decreased [Unknown]
  - Weight decreased [Unknown]
  - Balance disorder [Unknown]
  - Freezing phenomenon [Unknown]
  - Dystonia [Unknown]

NARRATIVE: CASE EVENT DATE: 20220801
